FAERS Safety Report 23892787 (Version 1)
Quarter: 2024Q2

REPORT INFORMATION
  Report Type: Report from Study
  Country: IN (occurrence: None)
  Receive Date: 20240524
  Receipt Date: 20240524
  Transmission Date: 20240716
  Serious: Yes (Hospitalization)
  Sender: FDA-Public Use
  Company Number: 2024A027236

PATIENT
  Sex: Female

DRUGS (2)
  1. LYNPARZA [Interacting]
     Active Substance: OLAPARIB
     Indication: Ovarian cancer
     Route: 048
  2. NIRAPARIB [Concomitant]
     Active Substance: NIRAPARIB

REACTIONS (2)
  - Drug interaction [Unknown]
  - Full blood count abnormal [Unknown]
